FAERS Safety Report 10642489 (Version 1)
Quarter: 2014Q4

REPORT INFORMATION
  Report Type: Spontaneous
  Country: US (occurrence: None)
  Receive Date: 20141208
  Receipt Date: 20141208
  Transmission Date: 20150529
  Serious: Yes (Hospitalization)
  Sender: FDA-Public Use
  Company Number: None

PATIENT
  Age: 79 Year
  Sex: Male
  Weight: 79.83 kg

DRUGS (1)
  1. LOSARTAN [Suspect]
     Active Substance: LOSARTAN
     Indication: HYPERTENSION
     Dosage: 1 TAB
     Route: 048
     Dates: start: 20141125, end: 20141203

REACTIONS (5)
  - Fatigue [None]
  - Heart rate decreased [None]
  - Syncope [None]
  - Asthenia [None]
  - Heart rate irregular [None]

NARRATIVE: CASE EVENT DATE: 20141203
